FAERS Safety Report 7366997-5 (Version None)
Quarter: 2011Q1

REPORT INFORMATION
  Report Type: 
  Country: None (occurrence: None)
  Receive Date: 20110322
  Receipt Date: 20110316
  Transmission Date: 20110831
  Serious: No
  Sender: FDA-Public Use
  Company Number: US-PFIZER INC-2011058046

PATIENT
  Sex: Male

DRUGS (1)
  1. GENOTROPIN [Suspect]
     Indication: SMALL FOR DATES BABY
     Dosage: UNK

REACTIONS (3)
  - TOOTH DEVELOPMENT DISORDER [None]
  - TOOTH DISCOLOURATION [None]
  - JAW DISORDER [None]
